FAERS Safety Report 22636567 (Version 2)
Quarter: 2023Q2

REPORT INFORMATION
  Report Type: Spontaneous
  Country: IN (occurrence: IN)
  Receive Date: 20230623
  Receipt Date: 20230627
  Transmission Date: 20230722
  Serious: Yes (Other)
  Sender: FDA-Public Use
  Company Number: IN-PFIZER INC-PV202300108285

PATIENT
  Age: 53 Year
  Sex: Male

DRUGS (1)
  1. LORLATINIB [Suspect]
     Active Substance: LORLATINIB
     Indication: Adenosquamous cell carcinoma
     Dosage: 100 MG, 1X/DAY AT NIGHT
     Route: 048
     Dates: start: 2021

REACTIONS (5)
  - Hypoventilation [Unknown]
  - Hepatic enzyme increased [Unknown]
  - Cough [Not Recovered/Not Resolved]
  - Lipids abnormal [Recovered/Resolved]
  - Neoplasm progression [Unknown]
